FAERS Safety Report 7806892-8 (Version None)
Quarter: 2011Q4

REPORT INFORMATION
  Report Type: 
  Country: None (occurrence: None)
  Receive Date: 20111011
  Receipt Date: 20110930
  Transmission Date: 20120403
  Serious: Yes (Hospitalization)
  Sender: FDA-Public Use
  Company Number: US-JNJFOC-20111000988

PATIENT
  Sex: Female
  Weight: 48.5 kg

DRUGS (5)
  1. INFLIXIMAB, RECOMBINANT [Suspect]
     Indication: INFLAMMATORY BOWEL DISEASE
     Route: 042
     Dates: start: 20100928
  2. AZATHIOPRINE [Concomitant]
  3. INFLIXIMAB, RECOMBINANT [Suspect]
     Route: 042
     Dates: start: 20100327
  4. PREDNISONE [Concomitant]
  5. MESALAMINE [Concomitant]

REACTIONS (1)
  - COLITIS ULCERATIVE [None]
